FAERS Safety Report 7649709-7 (Version None)
Quarter: 2011Q3

REPORT INFORMATION
  Report Type: 
  Country: None (occurrence: None)
  Receive Date: 20110802
  Receipt Date: 20110728
  Transmission Date: 20111222
  Serious: Yes (Hospitalization)
  Sender: FDA-Public Use
  Company Number: US-EISAI INC-E2020-09502-SPO-US

PATIENT
  Age: 81 Year
  Sex: Male

DRUGS (2)
  1. ARICEPT [Suspect]
     Indication: DEMENTIA
     Route: 048
     Dates: start: 20110601, end: 20110701
  2. ARICEPT [Suspect]
     Route: 048
     Dates: start: 20110701

REACTIONS (2)
  - PSYCHOTIC DISORDER [None]
  - ABDOMINAL PAIN UPPER [None]
